FAERS Safety Report 8143576-3 (Version None)
Quarter: 2012Q1

REPORT INFORMATION
  Report Type: 
  Country: None (occurrence: None)
  Receive Date: 20120217
  Receipt Date: 20111104
  Transmission Date: 20120608
  Serious: Yes (Other)
  Sender: FDA-Public Use
  Company Number: US-GLAXOSMITHKLINE-A0952026A

PATIENT
  Age: 68 Year
  Sex: Female

DRUGS (10)
  1. VOTRIENT [Suspect]
     Indication: RENAL CELL CARCINOMA
     Dosage: 800MG PER DAY
     Route: 048
     Dates: start: 20110805, end: 20110920
  2. XANAX [Concomitant]
     Dosage: 1MG AS REQUIRED
  3. M.V.I. [Concomitant]
  4. POTASSIUM CHLORIDE [Concomitant]
     Dosage: 20MEQ PER DAY
  5. ZOCOR [Concomitant]
     Dosage: 20MG PER DAY
  6. BYSTOLIC [Concomitant]
     Dosage: 10MG PER DAY
  7. FLOVENT [Concomitant]
  8. HYDROCHLOROTHIAZIDE [Concomitant]
  9. CLARITIN PRN [Concomitant]
  10. CALCIUM [Concomitant]

REACTIONS (1)
  - HEPATOTOXICITY [None]
